FAERS Safety Report 15440234 (Version 1)
Quarter: 2018Q3

REPORT INFORMATION
  Report Type: Report from Study
  Country: CO (occurrence: CO)
  Receive Date: 20180928
  Receipt Date: 20180928
  Transmission Date: 20181010
  Serious: Yes (Death)
  Sender: FDA-Public Use
  Company Number: PHHY2018CO104433

PATIENT
  Age: 87 Year
  Sex: Female
  Weight: 72 kg

DRUGS (1)
  1. ENTRESTO [Suspect]
     Active Substance: SACUBITRIL\VALSARTAN
     Indication: CARDIAC FAILURE
     Dosage: 50 MG, QD (SACUBITRIL 24MG, VALSARTAN 26MG)
     Route: 048
     Dates: start: 20180820

REACTIONS (4)
  - Prescribed underdose [Unknown]
  - Death [Fatal]
  - Inappropriate schedule of drug administration [Unknown]
  - Drug prescribing error [Unknown]

NARRATIVE: CASE EVENT DATE: 20180916
